FAERS Safety Report 9981444 (Version 1)
Quarter: 2014Q1

REPORT INFORMATION
  Report Type: Spontaneous
  Country: US (occurrence: US)
  Receive Date: 20140307
  Receipt Date: 20140307
  Transmission Date: 20141002
  Serious: Yes (Other)
  Sender: FDA-Public Use
  Company Number: US-BRISTOL-MYERS SQUIBB COMPANY-20344685

PATIENT
  Sex: Female

DRUGS (1)
  1. ABILIFY [Suspect]
     Dates: end: 2014

REACTIONS (5)
  - Acoustic neuroma [Unknown]
  - Fall [Unknown]
  - Ankle fracture [Unknown]
  - Depression [Recovered/Resolved]
  - Hypersomnia [Unknown]
